FAERS Safety Report 15209743 (Version 1)
Quarter: 2018Q3

REPORT INFORMATION
  Report Type: Spontaneous
  Country: ZA (occurrence: US)
  Receive Date: 20180727
  Receipt Date: 20180727
  Transmission Date: 20181010
  Serious: Yes (Death)
  Sender: FDA-Public Use
  Company Number: US-STI PHARMA LLC-2052856

PATIENT
  Age: 48 Year
  Sex: Female
  Weight: 61.14 kg

DRUGS (1)
  1. ETHAMBUTOL HYDROCHLORIDE. [Suspect]
     Active Substance: ETHAMBUTOL HYDROCHLORIDE
     Dates: start: 20180612, end: 20180701

REACTIONS (10)
  - Dyspnoea [Unknown]
  - Immune thrombocytopenic purpura [Unknown]
  - Diarrhoea [Unknown]
  - Sepsis [Unknown]
  - Muscle spasms [Unknown]
  - Pyelonephritis [Unknown]
  - Haemoglobin decreased [Unknown]
  - Vomiting [Unknown]
  - Renal failure [Fatal]
  - Mental disorder [Unknown]

NARRATIVE: CASE EVENT DATE: 20180701
